FAERS Safety Report 14590770 (Version 1)
Quarter: 2018Q1

REPORT INFORMATION
  Report Type: Spontaneous
  Country: US (occurrence: US)
  Receive Date: 20180301
  Receipt Date: 20180301
  Transmission Date: 20180509
  Serious: Yes (Other)
  Sender: FDA-Public Use
  Company Number: None

PATIENT

DRUGS (3)
  1. NIX [Suspect]
     Active Substance: PERMETHRIN
  2. KINNEY DRUGS LICE SHAMPOO (PERMETHRIN 1% ) [Suspect]
     Active Substance: PERMETHRIN
  3. RID SHAMPOO [Suspect]
     Active Substance: PIPERONYL BUTOXIDE\PYRETHRIN I

REACTIONS (5)
  - Inability to afford medication [None]
  - Drug ineffective [None]
  - Toxicity to various agents [None]
  - Drug resistance [None]
  - Infection [None]

NARRATIVE: CASE EVENT DATE: 20180224
